FAERS Safety Report 9660097 (Version 1)
Quarter: 2013Q4

REPORT INFORMATION
  Report Type: Spontaneous
  Country: AR (occurrence: US)
  Receive Date: 20131031
  Receipt Date: 20131031
  Transmission Date: 20140711
  Serious: Yes (Hospitalization, Other)
  Sender: FDA-Public Use
  Company Number: AR-JNJFOC-20131014039

PATIENT
  Age: 54 Year
  Sex: Female

DRUGS (3)
  1. OXYCODONE/ACETAMINOPHEN [Suspect]
     Indication: PAIN MANAGEMENT
     Dosage: OXYCODONE/ACETAMINOPHEN 7.5/500 MG, 2 TABLETS EVERY 4 HR AS NEEDED
     Route: 065
  2. SERTRALINE [Concomitant]
     Route: 065
  3. METHADONE [Concomitant]
     Route: 065

REACTIONS (7)
  - Overdose [Recovered/Resolved]
  - Urinary retention [Recovered/Resolved]
  - Drug dependence [Recovering/Resolving]
  - Change in sustained attention [Recovering/Resolving]
  - Memory impairment [Recovering/Resolving]
  - Disorientation [Recovering/Resolving]
  - Pain [Recovering/Resolving]
